FAERS Safety Report 9258151 (Version 4)
Quarter: 2013Q3

REPORT INFORMATION
  Report Type: Report from Study
  Country: US (occurrence: US)
  Receive Date: 20130426
  Receipt Date: 20130829
  Transmission Date: 20140515
  Serious: No
  Sender: FDA-Public Use
  Company Number: US-VERTEX PHARMACEUTICALS INC.-2013-005383

PATIENT
  Sex: Male

DRUGS (16)
  1. VX-950 (TELAPREVIR) [Suspect]
     Indication: HEPATITIS C
     Dosage: 750 MG, TID
     Route: 048
     Dates: start: 20130216, end: 20130516
  2. PEGASYS [Suspect]
     Indication: HEPATITIS C
     Dosage: 180 ?G, UNK
     Dates: start: 20130216
  3. PEGASYS [Suspect]
     Dosage: UNK
     Dates: end: 20130516
  4. RIBAVIRIN [Suspect]
     Indication: HEPATITIS C
     Dosage: 200 MG, BID
     Dates: start: 20130216
  5. RIBAVIRIN [Suspect]
     Dosage: 200 MG, QD
     Dates: start: 2013, end: 20130516
  6. EFFEXOR [Concomitant]
     Dosage: 200 MG, QD
  7. VITAMIN D3 [Concomitant]
     Dosage: 2000 DF, QD
  8. VICODIN [Concomitant]
     Dosage: 5-300MG
  9. PROTONIX [Concomitant]
     Dosage: 40 MG, BID
  10. GABAPENTIN [Concomitant]
     Dosage: 400 MG, QD
  11. SODIUM BICARBONATE [Concomitant]
     Dosage: UNK, BID
  12. MUCINEX D [Concomitant]
     Dosage: UNK, PRN
  13. XANAX [Concomitant]
     Dosage: 1 MG, BID
  14. LISINOPRIL [Concomitant]
     Dosage: 40 MG, QD
  15. ASPIR-81 [Concomitant]
     Dosage: 81 MG, UNK
  16. MULTIVITAMIN [Concomitant]
     Dosage: UNK, BID

REACTIONS (6)
  - Insomnia [Not Recovered/Not Resolved]
  - Dry skin [Not Recovered/Not Resolved]
  - Anaemia [Not Recovered/Not Resolved]
  - Diarrhoea [Not Recovered/Not Resolved]
  - Nausea [Not Recovered/Not Resolved]
  - Drug ineffective [Not Recovered/Not Resolved]
